FAERS Safety Report 7390380-X (Version None)
Quarter: 2011Q2

REPORT INFORMATION
  Report Type: 
  Country: None (occurrence: None)
  Receive Date: 20110401
  Receipt Date: 20110321
  Transmission Date: 20111010
  Serious: Yes (Hospitalization)
  Sender: FDA-Public Use
  Company Number: FR-GILEAD-E2B_00001119

PATIENT
  Sex: Female
  Weight: 111 kg

DRUGS (14)
  1. PROZAC [Concomitant]
  2. ALPRAZOLAM [Concomitant]
  3. GLIBENCLAMIDE [Concomitant]
  4. SPIRIVA [Concomitant]
  5. AMBRISENTAN [Suspect]
     Indication: PULMONARY ARTERIAL HYPERTENSION
     Dosage: 5MG PER DAY
     Route: 048
     Dates: start: 20110218, end: 20110223
  6. B BLOCHER-BISOPROLOL [Concomitant]
     Dates: end: 20110215
  7. ACUILIX [Concomitant]
     Indication: HYPERTENSION
     Route: 048
     Dates: start: 20090217, end: 20110224
  8. METFORMIN [Concomitant]
  9. ZOLPIDEM [Concomitant]
  10. GLUCOR [Concomitant]
  11. OXYGEN [Concomitant]
  12. TADALAFIL [Suspect]
     Indication: PULMONARY ARTERIAL HYPERTENSION
     Dosage: 20MG PER DAY
     Route: 048
     Dates: start: 20110218, end: 20110223
  13. ACARBOSE [Concomitant]
  14. PLAVIX [Concomitant]

REACTIONS (1)
  - RENAL FAILURE ACUTE [None]
